FAERS Safety Report 4359411-5 (Version None)
Quarter: 2004Q2

REPORT INFORMATION
  Report Type: 
  Country: None (occurrence: None)
  Receive Date: 20040518
  Receipt Date: 20040510
  Transmission Date: 20050107
  Serious: Yes (Death, Life-Threatening, Hospitalization, Disabling)
  Sender: FDA-Public Use
  Company Number: 200411043DE

PATIENT
  Age: 21 Year
  Sex: Female
  Weight: 67 kg

DRUGS (15)
  1. RIFA [Suspect]
     Indication: BACTERIAL INFECTION
     Route: 048
     Dates: start: 20010104, end: 20010106
  2. RIFA [Suspect]
     Indication: PYREXIA
     Route: 048
     Dates: start: 20010104, end: 20010106
  3. RIFA [Suspect]
     Indication: SEPSIS
     Route: 048
     Dates: start: 20010104, end: 20010106
  4. HEPARIN [Concomitant]
  5. PIPERACILLIN/TAZOBACTAM [Concomitant]
     Indication: BACTERIAL INFECTION
     Route: 042
     Dates: start: 20010102, end: 20010107
  6. PIPERACILLIN/TAZOBACTAM [Concomitant]
     Indication: SEPSIS
     Route: 042
     Dates: start: 20010102, end: 20010107
  7. PANTOPRAZOL [Concomitant]
     Indication: GASTRITIS
     Route: 042
     Dates: start: 20001220
  8. PANTOPRAZOL [Concomitant]
     Indication: GASTRODUODENITIS
     Route: 042
     Dates: start: 20001220
  9. PREDNISONE [Concomitant]
     Indication: AUTOIMMUNE THROMBOCYTOPENIA
     Route: 048
     Dates: start: 20001220
  10. DYTIDE H [Concomitant]
     Indication: OEDEMA
     Route: 048
     Dates: start: 20001224
  11. LORAZEPAM [Concomitant]
     Indication: ANXIETY
     Route: 048
     Dates: start: 20010103
  12. CYCLOSPORINE [Concomitant]
  13. CLOPIDOGREL BISULFATE [Concomitant]
  14. CYCLOPHOSPHAMIDE [Concomitant]
  15. GENTAMICIN [Concomitant]
     Indication: PYREXIA
     Dates: end: 20010104

REACTIONS (13)
  - ANAEMIA [None]
  - CAPILLARY LEAK SYNDROME [None]
  - CONDITION AGGRAVATED [None]
  - DRUG INTERACTION [None]
  - HAEMODIALYSIS [None]
  - HEPATIC FAILURE [None]
  - LACTIC ACIDOSIS [None]
  - MULTI-ORGAN FAILURE [None]
  - PANCREATITIS [None]
  - RENAL FAILURE [None]
  - RESPIRATORY FAILURE [None]
  - SEPSIS [None]
  - SHOCK [None]
